FAERS Safety Report 6159266-2 (Version None)
Quarter: 2009Q2

REPORT INFORMATION
  Report Type: 
  Country: None (occurrence: None)
  Receive Date: 20090417
  Receipt Date: 20090319
  Transmission Date: 20091009
  Serious: No
  Sender: FDA-Public Use
  Company Number: US-BAYER-200910885BCC

PATIENT
  Age: 71 Year
  Sex: Female
  Weight: 74 kg

DRUGS (7)
  1. ALEVE (CAPLET) [Suspect]
     Indication: ARTHRALGIA
     Dosage: TOTAL DAILY DOSE: 880 MG  UNIT DOSE: 220 MG
     Dates: start: 20090318
  2. OXYBUTYNIN CHLORIDE [Concomitant]
  3. ARICEPT [Concomitant]
  4. MIRAPEX [Concomitant]
  5. ZOCOR [Concomitant]
     Indication: BLOOD CHOLESTEROL INCREASED
  6. EQUATE CALCIUM 500 + D [Concomitant]
  7. CENTRUM SILVER [Concomitant]

REACTIONS (1)
  - URINARY INCONTINENCE [None]
